FAERS Safety Report 8102418-2 (Version None)
Quarter: 2012Q1

REPORT INFORMATION
  Report Type: 
  Country: None (occurrence: None)
  Receive Date: 20120131
  Receipt Date: 20120131
  Transmission Date: 20120608
  Serious: Yes (Hospitalization)
  Sender: FDA-Public Use
  Company Number: None

PATIENT
  Age: 65 Year
  Sex: Male
  Weight: 83.3 kg

DRUGS (1)
  1. ETODOLAC [Suspect]
     Indication: PAIN
     Dosage: 400 MG BID PO
     Route: 048
     Dates: start: 20110801, end: 20110913

REACTIONS (6)
  - FATIGUE [None]
  - OCCULT BLOOD POSITIVE [None]
  - HAEMORRHAGE [None]
  - HAEMOGLOBIN DECREASED [None]
  - MELAENA [None]
  - PNEUMONIA [None]
